FAERS Safety Report 8421726 (Version 2)
Quarter: 2013Q3

REPORT INFORMATION
  Report Type: Spontaneous
  Country: US (occurrence: US)
  Receive Date: 20120223
  Receipt Date: 20130701
  Transmission Date: 20140515
  Serious: No
  Sender: FDA-Public Use
  Company Number: US-PFIZER INC-2012044729

PATIENT
  Age: 68 Year
  Sex: Male
  Weight: 100.68 kg

DRUGS (7)
  1. VIAGRA [Suspect]
     Indication: ERECTILE DYSFUNCTION
     Dosage: 50 MG, AS NEEDED
     Route: 048
     Dates: start: 201105, end: 201110
  2. VIAGRA [Suspect]
     Dosage: 100 MG, AS NEEDED
     Route: 048
     Dates: start: 201302
  3. VIAGRA [Suspect]
     Dosage: 100 MG, WEEKLY
     Dates: end: 20130621
  4. WARFARIN [Concomitant]
     Indication: THROMBOSIS
     Dosage: UNK
  5. OXYCODONE [Concomitant]
     Indication: PAIN
     Dosage: UNK
  6. METFORMIN [Concomitant]
     Dosage: 500 MG, 1X/DAY
  7. XARELTO [Concomitant]
     Indication: THROMBOSIS
     Dosage: 20 MG, 1X/DAY

REACTIONS (2)
  - Expired drug administered [Unknown]
  - Drug ineffective [Unknown]
